FAERS Safety Report 7088933-1 (Version None)
Quarter: 2010Q4

REPORT INFORMATION
  Report Type: 
  Country: None (occurrence: None)
  Receive Date: 20101108
  Receipt Date: 20101028
  Transmission Date: 20110411
  Serious: Yes (Hospitalization)
  Sender: FDA-Public Use
  Company Number: PHHY2010TW64908

PATIENT
  Sex: Male
  Weight: 82 kg

DRUGS (2)
  1. EXJADE [Suspect]
     Indication: IRON OVERLOAD
     Dosage: 1875 MG DAILY
     Route: 048
     Dates: start: 20100906
  2. SANDIMMUNE [Concomitant]
     Indication: APLASTIC ANAEMIA
     Dosage: 2000 MG DAILY
     Dates: start: 20100913

REACTIONS (6)
  - DEBRIDEMENT [None]
  - ERYTHEMA [None]
  - EYE SWELLING [None]
  - HEPATIC FUNCTION ABNORMAL [None]
  - RENAL IMPAIRMENT [None]
  - VOMITING [None]
